FAERS Safety Report 12323010 (Version 1)
Quarter: 2016Q2

REPORT INFORMATION
  Report Type: Spontaneous
  Country: US (occurrence: US)
  Receive Date: 20160502
  Receipt Date: 20160502
  Transmission Date: 20160815
  Serious: No
  Sender: FDA-Public Use
  Company Number: US-JNJFOC-20160321286

PATIENT
  Age: 67 Year
  Sex: Female

DRUGS (1)
  1. STELARA [Suspect]
     Active Substance: USTEKINUMAB
     Indication: PSORIASIS
     Route: 058

REACTIONS (8)
  - Pruritus [Recovering/Resolving]
  - Drug ineffective [Unknown]
  - Nervousness [Unknown]
  - Burning sensation [Unknown]
  - Drug dose omission [Unknown]
  - Dyspepsia [Unknown]
  - Psoriasis [Unknown]
  - Insomnia [Unknown]

NARRATIVE: CASE EVENT DATE: 201603
